FAERS Safety Report 9466053 (Version 1)
Quarter: 2013Q3

REPORT INFORMATION
  Report Type: Spontaneous
  Country: US (occurrence: None)
  Receive Date: 20130816
  Receipt Date: 20130816
  Transmission Date: 20140515
  Serious: Yes (Other)
  Sender: FDA-Public Use
  Company Number: None

PATIENT
  Age: 63 Year
  Sex: Female
  Weight: 90.72 kg

DRUGS (3)
  1. EVISTA [Suspect]
     Indication: BONE DENSITY ABNORMAL
     Dosage: 1 PILL  ONCE DAILY  TAKEN BY MOUTH
     Route: 048
  2. EVISTA [Suspect]
     Indication: BREAST CANCER
     Dosage: 1 PILL  ONCE DAILY  TAKEN BY MOUTH
     Route: 048
  3. EVISTA [Suspect]
     Indication: PROPHYLAXIS
     Dosage: 1 PILL  ONCE DAILY  TAKEN BY MOUTH
     Route: 048

REACTIONS (3)
  - Impaired healing [None]
  - No therapeutic response [None]
  - Osteonecrosis of jaw [None]
